FAERS Safety Report 10537076 (Version 2)
Quarter: 2014Q4

REPORT INFORMATION
  Report Type: Report from Study
  Country: US (occurrence: US)
  Receive Date: 20141022
  Receipt Date: 20141107
  Transmission Date: 20150529
  Serious: Yes (Death, Hospitalization, Other)
  Sender: FDA-Public Use
  Company Number: US-GILEAD-2014-0119136

PATIENT
  Age: 62 Year
  Sex: Male
  Weight: 76.19 kg

DRUGS (20)
  1. IDELALISIB [Suspect]
     Active Substance: IDELALISIB
     Dosage: 150 MG, BID
     Route: 048
     Dates: start: 20131217, end: 20140311
  2. IDELALISIB [Suspect]
     Active Substance: IDELALISIB
     Dosage: 100 UNK, BID
     Route: 048
     Dates: start: 20140514, end: 20140922
  3. MIRALAX [Concomitant]
     Active Substance: POLYETHYLENE GLYCOL 3350
     Indication: CONSTIPATION
     Dosage: UNK
     Route: 048
  4. IDELALISIB [Suspect]
     Active Substance: IDELALISIB
     Indication: CHRONIC LYMPHOCYTIC LEUKAEMIA
     Dosage: 150 UNK, UNK
     Route: 048
     Dates: start: 20140923, end: 20141014
  5. ASPIRIN                            /00002701/ [Concomitant]
     Active Substance: ASPIRIN
     Indication: CEREBROVASCULAR ACCIDENT
     Dosage: UNK
     Route: 048
  6. BENADRYL [Concomitant]
     Active Substance: DIPHENHYDRAMINE HYDROCHLORIDE
     Indication: RASH
     Dosage: UNK
     Dates: start: 20140903
  7. FLUCONAZOLE. [Concomitant]
     Active Substance: FLUCONAZOLE
     Indication: ORAL CANDIDIASIS
     Route: 065
  8. NITROGLYCERINE [Concomitant]
     Active Substance: NITROGLYCERIN
     Indication: PROCTALGIA
     Route: 054
  9. OXYCODONE [Concomitant]
     Active Substance: OXYCODONE
     Indication: CONSTIPATION
     Dosage: UNK
     Route: 048
  10. COLACE [Concomitant]
     Active Substance: DOCUSATE SODIUM
     Indication: CONSTIPATION
     Dosage: UNK
     Route: 048
  11. ADVIL [Concomitant]
     Active Substance: IBUPROFEN
     Indication: FLANK PAIN
     Dosage: UNK
     Route: 048
  12. METOPROLOL SUCCINATE. [Concomitant]
     Active Substance: METOPROLOL SUCCINATE
     Indication: ATRIAL FIBRILLATION
     Dosage: UNK
     Route: 048
     Dates: start: 20140707
  13. PREDNISONE. [Concomitant]
     Active Substance: PREDNISONE
     Indication: PNEUMONITIS
  14. WARFARIN [Concomitant]
     Active Substance: WARFARIN
     Indication: ATRIAL FIBRILLATION
     Dosage: UNK
     Dates: start: 20140709
  15. PREDNISONE. [Concomitant]
     Active Substance: PREDNISONE
     Indication: PROPHYLAXIS
     Dosage: UNK
     Route: 048
  16. LEVALBUTEROL                       /01419301/ [Concomitant]
     Indication: ASTHMA
     Dosage: UNK
     Route: 055
     Dates: start: 20140711
  17. LOVENOX [Concomitant]
     Active Substance: ENOXAPARIN SODIUM
     Indication: PRODUCT USED FOR UNKNOWN INDICATION
     Dosage: UNK
     Route: 058
     Dates: start: 20140710
  18. MULTIVITAMINS [Concomitant]
     Active Substance: VITAMINS
     Indication: PRODUCT USED FOR UNKNOWN INDICATION
     Dosage: UNK
     Route: 048
  19. NEULASTA [Concomitant]
     Active Substance: PEGFILGRASTIM
     Indication: BONE PAIN
     Dosage: UNK
     Route: 030
  20. VALACYCLOVIR [Concomitant]
     Active Substance: VALACYCLOVIR HYDROCHLORIDE
     Indication: PRODUCT USED FOR UNKNOWN INDICATION
     Dosage: UNK
     Route: 048

REACTIONS (3)
  - Tumour lysis syndrome [Fatal]
  - Renal failure [Fatal]
  - Cellulitis [Not Recovered/Not Resolved]

NARRATIVE: CASE EVENT DATE: 20141015
